FAERS Safety Report 11970005 (Version 1)
Quarter: 2016Q1

REPORT INFORMATION
  Report Type: Spontaneous
  Country: BR (occurrence: BR)
  Receive Date: 20160128
  Receipt Date: 20160128
  Transmission Date: 20160526
  Serious: Yes (Hospitalization, Other)
  Sender: FDA-Public Use
  Company Number: BR-JNJFOC-20160118368

PATIENT
  Sex: Male

DRUGS (1)
  1. SIMPONI [Suspect]
     Active Substance: GOLIMUMAB
     Indication: RHEUMATOID ARTHRITIS
     Dosage: FIRST MONTH OF APPLICATION
     Route: 058
     Dates: start: 201508

REACTIONS (3)
  - Candida infection [Unknown]
  - Decreased immune responsiveness [Unknown]
  - Respiratory fatigue [Unknown]

NARRATIVE: CASE EVENT DATE: 2015
